FAERS Safety Report 5846116-4 (Version None)
Quarter: 2008Q3

REPORT INFORMATION
  Report Type: 
  Country: None (occurrence: None)
  Receive Date: 20080814
  Receipt Date: 20080804
  Transmission Date: 20090109
  Serious: Yes (Death)
  Sender: FDA-Public Use
  Company Number: GB-MERCK-0808GBR00015

PATIENT
  Age: 55 Year
  Sex: Female
  Weight: 115 kg

DRUGS (15)
  1. JANUVIA [Suspect]
     Indication: DIABETES MELLITUS
     Route: 048
     Dates: start: 20080425, end: 20080101
  2. LERCANIDIPINE HYDROCHLORIDE [Suspect]
     Indication: HYPERTENSION
     Route: 048
     Dates: start: 20080425, end: 20080101
  3. AMITRIPTYLINE HYDROCHLORIDE [Concomitant]
     Route: 065
     Dates: end: 20080101
  4. ASPIRIN [Concomitant]
     Route: 065
     Dates: end: 20080101
  5. BENDROFLUMETHIAZIDE [Concomitant]
     Route: 065
     Dates: end: 20080101
  6. TERBUTALINE SULFATE [Concomitant]
     Route: 065
     Dates: end: 20080101
  7. CANDESARTAN CILEXETIL [Concomitant]
     Route: 065
     Dates: end: 20080101
  8. DOMPERIDONE [Concomitant]
     Route: 065
     Dates: end: 20080101
  9. LEVOTHYROXINE SODIUM [Concomitant]
     Route: 065
     Dates: end: 20080101
  10. METFORMIN [Concomitant]
     Route: 065
     Dates: end: 20080101
  11. NITROGLYCERIN [Concomitant]
     Route: 065
     Dates: end: 20080101
  12. OMEPRAZOLE [Concomitant]
     Route: 065
     Dates: end: 20080101
  13. PREGABALIN [Concomitant]
     Route: 065
     Dates: end: 20080101
  14. BUDESONIDE AND FORMOTEROL FUMARATE [Concomitant]
     Route: 065
     Dates: end: 20080101
  15. TIOTROPIUM BROMIDE [Concomitant]
     Route: 065
     Dates: end: 20080101

REACTIONS (1)
  - PULMONARY EMBOLISM [None]
